FAERS Safety Report 18861727 (Version 4)
Quarter: 2021Q3

REPORT INFORMATION
  Report Type: Report from Study
  Country: US (occurrence: US)
  Receive Date: 20210208
  Receipt Date: 20210910
  Transmission Date: 20211014
  Serious: No
  Sender: FDA-Public Use
  Company Number: NVSC2021US022886

PATIENT
  Sex: Male

DRUGS (3)
  1. KESIMPTA [Suspect]
     Active Substance: OFATUMUMAB
     Indication: SECONDARY PROGRESSIVE MULTIPLE SCLEROSIS
  2. KESIMPTA [Suspect]
     Active Substance: OFATUMUMAB
     Indication: CLINICALLY ISOLATED SYNDROME
     Dosage: 0.4 ML
     Route: 050
     Dates: start: 20210127, end: 20210127
  3. KESIMPTA [Suspect]
     Active Substance: OFATUMUMAB
     Indication: RELAPSING-REMITTING MULTIPLE SCLEROSIS
     Dosage: 20 MG, QMO
     Route: 058

REACTIONS (7)
  - Speech disorder [Recovered/Resolved]
  - Malaise [Unknown]
  - Nasal congestion [Unknown]
  - Chills [Recovered/Resolved]
  - Eye swelling [Unknown]
  - Hypersensitivity [Unknown]
  - Pyrexia [Recovered/Resolved]
